FAERS Safety Report 15987265 (Version 2)
Quarter: 2019Q1

REPORT INFORMATION
  Report Type: Spontaneous
  Country: DE (occurrence: DE)
  Receive Date: 20190220
  Receipt Date: 20190222
  Transmission Date: 20190418
  Serious: No
  Sender: FDA-Public Use
  Company Number: PHHY2019DE039167

PATIENT
  Sex: Female

DRUGS (1)
  1. AZOPT [Suspect]
     Active Substance: BRINZOLAMIDE
     Indication: GLAUCOMA
     Dosage: UNK UNK, BID
     Route: 065
     Dates: start: 20190205, end: 20190211

REACTIONS (4)
  - Feeling abnormal [Unknown]
  - Abnormal sensation in eye [Unknown]
  - Tension [Unknown]
  - Dizziness [Unknown]

NARRATIVE: CASE EVENT DATE: 20190208
